FAERS Safety Report 9476821 (Version 1)
Quarter: 2013Q3

REPORT INFORMATION
  Report Type: Spontaneous
  Country: US (occurrence: US)
  Receive Date: 20130826
  Receipt Date: 20130826
  Transmission Date: 20140515
  Serious: Yes (Hospitalization)
  Sender: FDA-Public Use
  Company Number: US-B.I. PHARMACEUTICALS,INC./RIDGEFIELD-2013-BI-25978BP

PATIENT
  Age: 53 Year
  Sex: Female

DRUGS (5)
  1. PRADAXA [Suspect]
     Indication: ATRIAL FIBRILLATION
     Dosage: 300 MG
     Route: 048
  2. METFORMIN [Concomitant]
     Dosage: 2000 MG
     Route: 048
  3. AMIODARONE [Concomitant]
     Dosage: 200 MG
     Route: 048
  4. METOPROLOL [Concomitant]
     Dosage: 50 MG
     Route: 048
  5. RANITIDINE [Concomitant]
     Dosage: 300 MG
     Route: 048

REACTIONS (1)
  - Infarction [Recovered/Resolved]
